FAERS Safety Report 9834661 (Version 1)
Quarter: 2014Q1

REPORT INFORMATION
  Report Type: Report from Study
  Country: BR (occurrence: BR)
  Receive Date: 20140122
  Receipt Date: 20140122
  Transmission Date: 20141002
  Serious: Yes (Other)
  Sender: FDA-Public Use
  Company Number: PHHY2014BR005885

PATIENT
  Sex: Female
  Weight: 102 kg

DRUGS (1)
  1. DIOVAN HCT [Suspect]
     Indication: BLOOD PRESSURE ABNORMAL
     Dosage: 1 DF (320MG VALS/12.5MG HCT), DAILY

REACTIONS (1)
  - Asthma [Not Recovered/Not Resolved]
